FAERS Safety Report 5126469-5 (Version None)
Quarter: 2006Q4

REPORT INFORMATION
  Report Type: 
  Country: None (occurrence: None)
  Receive Date: 20061010
  Receipt Date: 20060927
  Transmission Date: 20070319
  Serious: Yes (Disabling, Other)
  Sender: FDA-Public Use
  Company Number: 2006104937

PATIENT
  Age: 29 Year
  Sex: Female
  Weight: 79.3795 kg

DRUGS (10)
  1. XANAX [Suspect]
     Indication: PANIC DISORDER
     Dosage: (3 IN 1 D)
  2. CHANTIX [Suspect]
     Indication: SMOKING CESSATION THERAPY
     Dosage: 0.5 MG (0.5 MG, 1 IN 1 D), ORAL
     Route: 048
     Dates: start: 20060813
  3. SUDAFED 12 HOUR [Suspect]
  4. SUMATRIPTAN SUCCINATE [Suspect]
     Indication: MIGRAINE
  5. EFFEXOR [Suspect]
     Indication: BIPOLAR DISORDER
  6. CLARITIN [Concomitant]
  7. ORAL CONTRACEPTIVE NOS (ORAL CONTRACEPTIVE NOS) [Concomitant]
  8. TYLENOL W/ CODEINE [Concomitant]
  9. PROMETHAZINE [Concomitant]
  10. ACETAMINOPHEN [Concomitant]

REACTIONS (21)
  - ABDOMINAL PAIN UPPER [None]
  - BACK PAIN [None]
  - BIPOLAR DISORDER [None]
  - CHEST PAIN [None]
  - CHILLS [None]
  - DYSSTASIA [None]
  - FEELING ABNORMAL [None]
  - HEART RATE INCREASED [None]
  - HOT FLUSH [None]
  - HYPERHIDROSIS [None]
  - HYPERSENSITIVITY [None]
  - INSOMNIA [None]
  - MENTAL DISORDER [None]
  - MIGRAINE [None]
  - NAUSEA [None]
  - NERVOUSNESS [None]
  - OVERWEIGHT [None]
  - PALPITATIONS [None]
  - PANIC DISORDER [None]
  - STOMACH DISCOMFORT [None]
  - TREATMENT NONCOMPLIANCE [None]
